FAERS Safety Report 24412548 (Version 1)
Quarter: 2024Q4

REPORT INFORMATION
  Report Type: Spontaneous
  Country: US (occurrence: US)
  Receive Date: 20241008
  Receipt Date: 20241008
  Transmission Date: 20250115
  Serious: Yes (Hospitalization, Other)
  Sender: GLAXOSMITHKLINE
  Company Number: US-GSK-US2024AMR122211

PATIENT

DRUGS (1)
  1. ZEJULA [Suspect]
     Active Substance: NIRAPARIB
     Indication: Ovarian cancer
     Dosage: 100 MG, QD ( 5 DAY EACH WEEK)
     Route: 048
     Dates: start: 20240206

REACTIONS (10)
  - Urticaria [Unknown]
  - Autoimmune disorder [Unknown]
  - Vertigo [Unknown]
  - Dizziness [Unknown]
  - Herpes zoster [Unknown]
  - Ear disorder [Unknown]
  - Poor quality sleep [Unknown]
  - Anxiety [Unknown]
  - Product use issue [Unknown]
  - Inappropriate schedule of product administration [Unknown]

NARRATIVE: CASE EVENT DATE: 20240201
